FAERS Safety Report 25903103 (Version 2)
Quarter: 2025Q4

REPORT INFORMATION
  Report Type: Spontaneous
  Country: EU (occurrence: EU)
  Receive Date: 20251009
  Receipt Date: 20251017
  Transmission Date: 20260117
  Serious: Yes (Death)
  Sender: ASTELLAS
  Company Number: EU-ASTELLAS-2025-AER-043389

PATIENT
  Age: 56 Year
  Sex: Female

DRUGS (1)
  1. XTANDI [Suspect]
     Active Substance: ENZALUTAMIDE
     Indication: Triple negative breast cancer
     Route: 048
     Dates: start: 20250812

REACTIONS (3)
  - Malignant neoplasm progression [Fatal]
  - Off label use [Unknown]
  - Intentional product use issue [Unknown]

NARRATIVE: CASE EVENT DATE: 20250812
